FAERS Safety Report 20060615 (Version 4)
Quarter: 2022Q1

REPORT INFORMATION
  Report Type: Spontaneous
  Country: US (occurrence: US)
  Receive Date: 20211112
  Receipt Date: 20220113
  Transmission Date: 20220423
  Serious: Yes (Hospitalization)
  Sender: FDA-Public Use
  Company Number: US-ELI_LILLY_AND_COMPANY-US202111005550

PATIENT
  Sex: Female

DRUGS (1)
  1. ZYPREXA [Suspect]
     Active Substance: OLANZAPINE
     Indication: Product used for unknown indication
     Dosage: 5 MG, UNKNOWN
     Route: 065
     Dates: start: 1996

REACTIONS (10)
  - Renal failure [Unknown]
  - Cough [Unknown]
  - Vomiting [Unknown]
  - Dysuria [Unknown]
  - Coma [Unknown]
  - General physical health deterioration [Unknown]
  - Agitation [Unknown]
  - Blood pressure inadequately controlled [Unknown]
  - Weight increased [Unknown]
  - Alopecia [Unknown]
